FAERS Safety Report 8236745-5 (Version None)
Quarter: 2012Q1

REPORT INFORMATION
  Report Type: 
  Country: None (occurrence: None)
  Receive Date: 20120323
  Receipt Date: 20120308
  Transmission Date: 20120608
  Serious: Yes (Hospitalization, Other)
  Sender: FDA-Public Use
  Company Number: 20120148

PATIENT
  Age: 45 Year
  Sex: Female

DRUGS (1)
  1. METHYLENE BLUE INJECTION, USP (0310-10) 10 MG/ML [Suspect]
     Indication: MAMMOPLASTY
     Dates: start: 20070101, end: 20070101

REACTIONS (9)
  - PRODUCT CONTAMINATION MICROBIAL [None]
  - POOR QUALITY DRUG ADMINISTERED [None]
  - LABORATORY TEST INTERFERENCE [None]
  - BREAST CANCER [None]
  - MYCOPLASMA INFECTION [None]
  - GRANULOMA [None]
  - BREAST INFECTION [None]
  - NECROSIS [None]
  - SCAR [None]
